FAERS Safety Report 16757471 (Version 1)
Quarter: 2019Q3

REPORT INFORMATION
  Report Type: Report from Study
  Country: US (occurrence: US)
  Receive Date: 20190830
  Receipt Date: 20190830
  Transmission Date: 20191005
  Serious: Yes (Hospitalization)
  Sender: FDA-Public Use
  Company Number: US-BIOGEN-2019BI00778737

PATIENT
  Sex: Female

DRUGS (1)
  1. TECFIDERA [Suspect]
     Active Substance: DIMETHYL FUMARATE
     Indication: MULTIPLE SCLEROSIS
     Route: 048
     Dates: start: 20180221, end: 20181030

REACTIONS (12)
  - Vomiting [Recovered/Resolved]
  - Feeding disorder [Recovered/Resolved]
  - Feeling of body temperature change [Recovered/Resolved]
  - Malaise [Recovered/Resolved]
  - Mobility decreased [Recovered/Resolved]
  - Influenza like illness [Recovered/Resolved]
  - Eye irritation [Recovered/Resolved]
  - Blister [Recovered/Resolved]
  - Thrombosis [Unknown]
  - Panic attack [Unknown]
  - Eyelid function disorder [Recovered/Resolved]
  - Product use in unapproved indication [Unknown]
